FAERS Safety Report 13378378 (Version 1)
Quarter: 2017Q1

REPORT INFORMATION
  Report Type: Spontaneous
  Country: US (occurrence: US)
  Receive Date: 20170328
  Receipt Date: 20170328
  Transmission Date: 20170429
  Serious: No
  Sender: FDA-Public Use
  Company Number: US-PFIZER INC-2016005273

PATIENT
  Age: 76 Year
  Sex: Female
  Weight: 64 kg

DRUGS (13)
  1. CALTRATE WITH VITAMIN D [Concomitant]
     Active Substance: CALCIUM CARBONATE\CHOLECALCIFEROL
     Indication: ARTHRALGIA
     Dosage: 2 DF, 1X/DAY
  2. CALTRATE [Concomitant]
     Active Substance: CALCIUM CARBONATE
     Dosage: 1 DF, 1X/DAY
  3. VESICARE [Concomitant]
     Active Substance: SOLIFENACIN SUCCINATE
     Indication: INCONTINENCE
     Dosage: 10 MG, 1X/DAY
     Route: 048
     Dates: start: 201506
  4. FINASTERIDE. [Concomitant]
     Active Substance: FINASTERIDE
     Indication: ALOPECIA
     Dosage: 1 MG, 1X/DAY
     Route: 048
     Dates: start: 2015
  5. OCUVITE ADULT 50 + [Concomitant]
     Indication: OPTIC NERVE CUPPING
     Dosage: 1 DF, 1X/DAY, WITH A MEAL
     Route: 048
     Dates: start: 201512
  6. VITAMIN D3 [Concomitant]
     Active Substance: CHOLECALCIFEROL
     Indication: SUPPLEMENTATION THERAPY
     Dosage: 1 DF, 1X/DAY
     Route: 048
  7. MELATONIN [Concomitant]
     Active Substance: MELATONIN
     Indication: INSOMNIA
     Dosage: 5 MG, 1X/DAY, NIGHTLY
     Route: 048
  8. MYRBETRIQ [Concomitant]
     Active Substance: MIRABEGRON
     Indication: INCONTINENCE
     Dosage: 50 MG, 1X/DAY
     Route: 048
     Dates: start: 2013
  9. SYNTHROID [Concomitant]
     Active Substance: LEVOTHYROXINE SODIUM
     Indication: HYPOTHYROIDISM
     Dosage: 100 UG, 1X/DAY, IN THE MORNING
     Route: 048
     Dates: start: 1987
  10. ACIDOPHILUS PROBIOTIC [Concomitant]
     Dosage: 1 DF, 1X/DAY
  11. LORAZEPAM. [Suspect]
     Active Substance: LORAZEPAM
     Indication: SLEEP DISORDER
     Dosage: 1 OR 2 TABLETS , 1X/DAY
     Dates: start: 2015
  12. NATURE MADE WITH CALCIUM, MULTIVITAMIN [Concomitant]
     Indication: SUPPLEMENTATION THERAPY
     Dosage: 1 DF, 1X/DAY
     Route: 048
  13. ERGOCALCIFEROL. [Concomitant]
     Active Substance: ERGOCALCIFEROL
     Indication: MINERAL SUPPLEMENTATION
     Dosage: 1 DF, WEEKLY
     Route: 048
     Dates: start: 201502

REACTIONS (3)
  - Fatigue [Unknown]
  - Intentional product misuse [Unknown]
  - Drug ineffective [Unknown]
